FAERS Safety Report 4916610-9 (Version None)
Quarter: 2006Q1

REPORT INFORMATION
  Report Type: 
  Country: None (occurrence: None)
  Receive Date: 20060220
  Receipt Date: 20060207
  Transmission Date: 20060701
  Serious: Yes (Death)
  Sender: FDA-Public Use
  Company Number: B0410370A

PATIENT
  Age: 21 Year
  Sex: Male

DRUGS (2)
  1. ALBENDAZOLE [Suspect]
     Indication: FILARIASIS LYMPHATIC
     Dosage: 1TAB UNKNOWN
     Route: 065
     Dates: start: 20050608
  2. DIETHYLCARBAMAZINE [Suspect]
     Indication: FILARIASIS LYMPHATIC
     Dosage: 3TAB UNKNOWN
     Route: 065
     Dates: start: 20050608

REACTIONS (5)
  - DIZZINESS [None]
  - FALL [None]
  - FATIGUE [None]
  - HEADACHE [None]
  - RHEUMATIC HEART DISEASE [None]
